FAERS Safety Report 4859927-9 (Version None)
Quarter: 2005Q4

REPORT INFORMATION
  Report Type: 
  Country: None (occurrence: None)
  Receive Date: 20051219
  Receipt Date: 20051207
  Transmission Date: 20060501
  Serious: Yes (Other)
  Sender: FDA-Public Use
  Company Number: PHBS2005JP18280

PATIENT
  Sex: Female

DRUGS (1)
  1. VOLTAREN [Suspect]
     Indication: EPICONDYLITIS
     Route: 062
     Dates: start: 20051205, end: 20051206

REACTIONS (1)
  - HAEMORRHAGE SUBCUTANEOUS [None]
